FAERS Safety Report 16438134 (Version 3)
Quarter: 2019Q4

REPORT INFORMATION
  Report Type: Report from Study
  Country: KR (occurrence: KR)
  Receive Date: 20190617
  Receipt Date: 20191210
  Transmission Date: 20200122
  Serious: Yes (Hospitalization, Other)
  Sender: FDA-Public Use
  Company Number: KR-IPSEN BIOPHARMACEUTICALS, INC.-2019-07574

PATIENT
  Age: 50 Year
  Sex: Male

DRUGS (14)
  1. MAGNESIUM HYDROXIDE. [Concomitant]
     Active Substance: MAGNESIUM HYDROXIDE
     Route: 048
     Dates: start: 20190129, end: 20190411
  2. ATROPINE SULFATE. [Concomitant]
     Active Substance: ATROPINE SULFATE
     Indication: PROPHYLAXIS
     Route: 058
     Dates: start: 20190223, end: 20190526
  3. GRANISETRON HYDROCHLORIDE. [Concomitant]
     Active Substance: GRANISETRON HYDROCHLORIDE
     Indication: NAUSEA
     Dosage: 34.3 MG, TD AS NEEDED
     Dates: start: 20190314, end: 20190527
  4. DEXAMETHASONE. [Concomitant]
     Active Substance: DEXAMETHASONE
     Indication: PROPHYLAXIS
     Route: 042
     Dates: start: 20190223, end: 20190527
  5. FENTANYL CITRATE. [Concomitant]
     Active Substance: FENTANYL CITRATE
     Indication: BACK PAIN
     Route: 048
     Dates: start: 20190401
  6. LACTULOSE. [Concomitant]
     Active Substance: LACTULOSE
     Indication: CONSTIPATION
     Route: 048
     Dates: start: 20190129
  7. ONIVYDE [Suspect]
     Active Substance: IRINOTECAN HYDROCHLORIDE
     Indication: PANCREATIC CARCINOMA METASTATIC
     Dosage: 112 MG, ONE DOSE
     Route: 042
     Dates: start: 20190402
  8. FENTANYL CITRATE. [Concomitant]
     Active Substance: FENTANYL CITRATE
     Indication: ABDOMINAL PAIN
  9. ULTRACET [Concomitant]
     Active Substance: ACETAMINOPHEN\TRAMADOL HYDROCHLORIDE
     Indication: BACK PAIN
     Route: 048
     Dates: start: 20181129, end: 20190528
  10. ULTRACET [Concomitant]
     Active Substance: ACETAMINOPHEN\TRAMADOL HYDROCHLORIDE
     Indication: ABDOMINAL PAIN
  11. PRUCALOPRIDE [Concomitant]
     Active Substance: PRUCALOPRIDE
     Indication: CONSTIPATION
     Route: 048
     Dates: start: 20190329, end: 20190423
  12. FLUOROURACIL. [Concomitant]
     Active Substance: FLUOROURACIL
     Route: 042
     Dates: start: 20190402
  13. LEUCOVORIN. [Concomitant]
     Active Substance: LEUCOVORIN
     Route: 042
     Dates: start: 20190402
  14. PALONOSETRON. [Concomitant]
     Active Substance: PALONOSETRON HYDROCHLORIDE
     Route: 042
     Dates: start: 20190223, end: 20190526

REACTIONS (4)
  - Decreased appetite [Recovered/Resolved]
  - Supraventricular tachycardia [Recovered/Resolved]
  - Dizziness [Recovered/Resolved]
  - Nausea [Not Recovered/Not Resolved]

NARRATIVE: CASE EVENT DATE: 20190402
